FAERS Safety Report 23696097 (Version 1)
Quarter: 2024Q2

REPORT INFORMATION
  Report Type: Spontaneous
  Country: US (occurrence: US)
  Receive Date: 20240402
  Receipt Date: 20240402
  Transmission Date: 20240715
  Serious: No
  Sender: FDA-Public Use
  Company Number: US-TEVA-VS-3154439

PATIENT
  Age: 75 Year
  Sex: Female
  Weight: 88.45 kg

DRUGS (1)
  1. FLUOXETINE [Suspect]
     Active Substance: FLUOXETINE HYDROCHLORIDE
     Indication: Depression
     Route: 065
     Dates: start: 202209

REACTIONS (8)
  - Glucose-6-phosphate dehydrogenase deficiency [Unknown]
  - Hypertension [Unknown]
  - Weight decreased [Unknown]
  - Fatigue [Recovered/Resolved]
  - Glycosylated haemoglobin increased [Unknown]
  - Dizziness [Recovered/Resolved]
  - Ulcer [Unknown]
  - Sleep disorder [Recovered/Resolved]

NARRATIVE: CASE EVENT DATE: 20231226
